FAERS Safety Report 7007341-2 (Version None)
Quarter: 2010Q3

REPORT INFORMATION
  Report Type: 
  Country: None (occurrence: None)
  Receive Date: 20100922
  Receipt Date: 20100914
  Transmission Date: 20110219
  Serious: Yes (Other)
  Sender: FDA-Public Use
  Company Number: US-BAXTER-2010BH023887

PATIENT
  Age: 31 Month
  Sex: Female

DRUGS (1)
  1. POLYGAM S/D [Suspect]
     Indication: GUILLAIN-BARRE SYNDROME
     Route: 042

REACTIONS (1)
  - NEUTROPENIA [None]
